FAERS Safety Report 11561413 (Version 1)
Quarter: 2015Q3

REPORT INFORMATION
  Report Type: Report from Study
  Country: BR (occurrence: BR)
  Receive Date: 20150928
  Receipt Date: 20150928
  Transmission Date: 20151125
  Serious: Yes (Hospitalization, Other)
  Sender: FDA-Public Use
  Company Number: BR-ABBVIE-15K-020-1468230-00

PATIENT
  Age: 61 Year
  Sex: Female
  Weight: 69 kg

DRUGS (11)
  1. IBUPROFEN. [Concomitant]
     Active Substance: IBUPROFEN
     Indication: PAIN
     Route: 048
  2. OMEPRAZOLE. [Concomitant]
     Active Substance: OMEPRAZOLE
     Indication: PROPHYLAXIS
  3. ZETIA [Concomitant]
     Active Substance: EZETIMIBE
     Indication: BLOOD CHOLESTEROL ABNORMAL
     Route: 048
     Dates: start: 2007
  4. OMEPRAZOLE. [Concomitant]
     Active Substance: OMEPRAZOLE
     Indication: GASTRIC DISORDER
     Route: 048
  5. LEVOTHYROXINE. [Concomitant]
     Active Substance: LEVOTHYROXINE
     Indication: HYPOTHYROIDISM
     Route: 048
  6. COLLESTRA [Concomitant]
     Indication: BLOOD CHOLESTEROL ABNORMAL
     Route: 048
  7. CALCIUM [Concomitant]
     Active Substance: CALCIUM
     Indication: MINERAL SUPPLEMENTATION
     Route: 048
  8. LYRICA [Concomitant]
     Active Substance: PREGABALIN
     Indication: PAIN
     Route: 048
  9. HUMIRA [Suspect]
     Active Substance: ADALIMUMAB
     Indication: RHEUMATOID ARTHRITIS
     Route: 058
     Dates: start: 20140701
  10. DEPURA [Concomitant]
     Active Substance: CHOLECALCIFEROL
     Indication: VITAMIN SUPPLEMENTATION
     Route: 048
  11. DIPYRONE [Concomitant]
     Active Substance: DIPYRONE
     Indication: PAIN
     Route: 048

REACTIONS (23)
  - Drug effect incomplete [Recovering/Resolving]
  - Memory impairment [Not Recovered/Not Resolved]
  - Intervertebral disc degeneration [Unknown]
  - Osteoarthropathy [Unknown]
  - Spinal pain [Not Recovered/Not Resolved]
  - Intervertebral disc protrusion [Not Recovered/Not Resolved]
  - Umbilical hernia [Unknown]
  - Haemangioma of bone [Unknown]
  - Intervertebral disc calcification [Unknown]
  - Bone atrophy [Unknown]
  - Vertebral osteophyte [Unknown]
  - Osteosclerosis [Unknown]
  - Exostosis [Unknown]
  - Activities of daily living impaired [Not Recovered/Not Resolved]
  - Intervertebral disc space narrowing [Unknown]
  - Weight increased [Unknown]
  - Aortic arteriosclerosis [Unknown]
  - Anxiety [Unknown]
  - Insomnia [Unknown]
  - Bone density decreased [Unknown]
  - Spondylolisthesis [Unknown]
  - Blood cholesterol abnormal [Unknown]
  - Hypoaesthesia [Recovering/Resolving]

NARRATIVE: CASE EVENT DATE: 20150501
